FAERS Safety Report 12267147 (Version 2)
Quarter: 2016Q2

REPORT INFORMATION
  Report Type: Spontaneous
  Country: GB (occurrence: GB)
  Receive Date: 20160414
  Receipt Date: 20160513
  Transmission Date: 20160815
  Serious: Yes (Other)
  Sender: FDA-Public Use
  Company Number: GB-BAXTER-2016BAX017138

PATIENT
  Age: 67 Year
  Sex: Female
  Weight: 80 kg

DRUGS (4)
  1. NORAD [Concomitant]
     Indication: VASOPRESSIVE THERAPY
     Dosage: 4 MG/50 ML, 7-9 ML/HR
     Route: 065
  2. HEPARIN SODIUM AND SODIUM CHLORIDE [Suspect]
     Active Substance: HEPARIN SODIUM
     Indication: DEVICE PRIMING
     Route: 065
  3. EPOPROSTENOL. [Concomitant]
     Active Substance: EPOPROSTENOL
     Indication: PRODUCT USED FOR UNKNOWN INDICATION
     Dosage: INFUSION
     Route: 065
  4. HEPARIN SODIUM AND SODIUM CHLORIDE [Suspect]
     Active Substance: HEPARIN SODIUM
     Dosage: PRIMING, 2ML/HR
     Route: 065
     Dates: start: 20160324

REACTIONS (8)
  - Thrombosis in device [Unknown]
  - Wheezing [Recovering/Resolving]
  - Heart rate decreased [Recovering/Resolving]
  - Pain [Recovering/Resolving]
  - Pain [Recovered/Resolved]
  - Oxygen saturation decreased [Recovering/Resolving]
  - Flushing [Recovering/Resolving]
  - Hypotension [Recovering/Resolving]

NARRATIVE: CASE EVENT DATE: 20160324
